FAERS Safety Report 13144413 (Version 2)
Quarter: 2017Q1

REPORT INFORMATION
  Report Type: Spontaneous
  Country: LK (occurrence: LK)
  Receive Date: 20170124
  Receipt Date: 20170213
  Transmission Date: 20170428
  Serious: Yes (Hospitalization)
  Sender: FDA-Public Use
  Company Number: LK-CIPLA LTD.-2017LK00945

PATIENT

DRUGS (6)
  1. SALMETEROL/ FLUTICASONE PROPIONATE [Suspect]
     Active Substance: FLUTICASONE PROPIONATE\SALMETEROL XINAFOATE
     Indication: ASTHMA
     Dosage: 250/50 MG, BID
  2. SALBUTAMOL [Suspect]
     Active Substance: ALBUTEROL
     Indication: ASTHMA
     Dosage: UNK, NEBULIZED 8 HOURLY
     Route: 065
  3. ROSUVASTATIN. [Suspect]
     Active Substance: ROSUVASTATIN
     Indication: DYSLIPIDAEMIA
     Dosage: 10 MG, NOCTE
     Route: 065
  4. WARFARIN [Suspect]
     Active Substance: WARFARIN
     Indication: ANTICOAGULANT THERAPY
     Dosage: 5 MG, VESPER
     Route: 048
  5. LOSARTAN. [Suspect]
     Active Substance: LOSARTAN
     Indication: HYPERTENSION
     Dosage: 50 MG, BID
     Route: 048
  6. HEPARIN [Suspect]
     Active Substance: HEPARIN SODIUM
     Indication: ANTICOAGULANT THERAPY
     Dosage: 1000 IU/H
     Route: 042

REACTIONS (15)
  - Abdominal wall haematoma [Recovered/Resolved]
  - Haemoglobin decreased [None]
  - Tachycardia [None]
  - Rhonchi [None]
  - Alanine aminotransferase increased [None]
  - White blood cell count decreased [None]
  - Platelet count decreased [None]
  - Aspartate aminotransferase increased [None]
  - Dengue fever [Recovered/Resolved]
  - Activated partial thromboplastin time prolonged [None]
  - Cardiac murmur [None]
  - Haematocrit decreased [None]
  - Shock [None]
  - Urine output decreased [None]
  - Haemorrhage [None]
